FAERS Safety Report 7948834-0 (Version None)
Quarter: 2011Q4

REPORT INFORMATION
  Report Type: 
  Country: None (occurrence: None)
  Receive Date: 20111130
  Receipt Date: 20111118
  Transmission Date: 20120403
  Serious: Yes (Life-Threatening, Hospitalization, Other)
  Sender: FDA-Public Use
  Company Number: PHEH2011US07769

PATIENT
  Sex: Female

DRUGS (2)
  1. TASIGNA [Suspect]
     Indication: CHRONIC MYELOID LEUKAEMIA
     Dosage: 300 MG, BID
     Route: 048
     Dates: start: 20110217
  2. LORTAB [Concomitant]
     Indication: PAIN
     Dates: start: 20080822

REACTIONS (25)
  - PERICARDIAL EFFUSION [None]
  - BLOOD CREATININE INCREASED [None]
  - VOMITING [None]
  - RENAL FAILURE ACUTE [None]
  - HEPATITIS [None]
  - DYSPNOEA [None]
  - BLOOD SODIUM DECREASED [None]
  - HYPERPLASIA [None]
  - BLOOD GLUCOSE INCREASED [None]
  - HEPATIC ENZYME INCREASED [None]
  - NAUSEA [None]
  - ASPARTATE AMINOTRANSFERASE INCREASED [None]
  - BLOOD UREA INCREASED [None]
  - MALAISE [None]
  - BLOOD POTASSIUM DECREASED [None]
  - GALLBLADDER ENLARGEMENT [None]
  - FIBROSIS [None]
  - WHITE BLOOD CELL COUNT INCREASED [None]
  - RED BLOOD CELL COUNT DECREASED [None]
  - CARDIOMEGALY [None]
  - SUBCUTANEOUS EMPHYSEMA [None]
  - INFLAMMATION [None]
  - PLEURAL EFFUSION [None]
  - ALANINE AMINOTRANSFERASE INCREASED [None]
  - NEUTROPHIL COUNT INCREASED [None]
